FAERS Safety Report 9929232 (Version 3)
Quarter: 2014Q2

REPORT INFORMATION
  Report Type: Spontaneous
  Country: US (occurrence: None)
  Receive Date: 20140225
  Receipt Date: 20140502
  Transmission Date: 20141212
  Serious: Yes (Death, Other)
  Sender: FDA-Public Use
  Company Number: 152683

PATIENT
  Age: 74 Year
  Sex: Male
  Weight: 88 kg

DRUGS (2)
  1. CYTARABINE [Suspect]
     Indication: ACUTE MYELOID LEUKAEMIA
     Dates: start: 20140109, end: 20140115
  2. DAUNORUBICIN [Concomitant]

REACTIONS (10)
  - Pleural effusion [None]
  - Lung infection [None]
  - Pulmonary oedema [None]
  - Respiratory failure [None]
  - Fluid overload [None]
  - Neutropenia [None]
  - Unresponsive to stimuli [None]
  - No therapeutic response [None]
  - Mental status changes [None]
  - Hypoxia [None]
